FAERS Safety Report 8410280-3 (Version None)
Quarter: 2012Q2

REPORT INFORMATION
  Report Type: 
  Country: None (occurrence: None)
  Receive Date: 20120529
  Receipt Date: 20050817
  Transmission Date: 20120825
  Serious: Yes (Hospitalization)
  Sender: FDA-Public Use
  Company Number: 15691-USA-05-1937

PATIENT
  Age: 48 Year
  Sex: Male

DRUGS (16)
  1. THIAMINE HCL [Concomitant]
  2. AMBIEN [Concomitant]
  3. BUPROPION HCL [Concomitant]
  4. FERROUS SULFATE TAB [Concomitant]
  5. TOLVAPTAN (TOLVAPTAN) TABLET, 2DF DOSAGE FORM [Suspect]
     Indication: HYPONATRAEMIA
     Dosage: 60 MG, QD, ORAL
     Route: 048
     Dates: start: 20050331, end: 20050825
  6. AMIODARONE HCL [Concomitant]
  7. LASIX [Concomitant]
  8. NEXIUM [Concomitant]
  9. LANTUS [Concomitant]
  10. MILRINONE LACTATE [Concomitant]
  11. NOVOLOG MIX 70/30 (INSULIN ASPART, PROTAMINE INSULIN ASPART) [Concomitant]
  12. ASPIRIN [Concomitant]
  13. IMDUR [Concomitant]
  14. ALLOPURINOL [Concomitant]
  15. CIPRO [Concomitant]
  16. ZOLOFT [Concomitant]

REACTIONS (10)
  - CARDIAC FAILURE [None]
  - DYSURIA [None]
  - RENAL FAILURE ACUTE [None]
  - CLOSTRIDIUM TEST POSITIVE [None]
  - HAEMODIALYSIS [None]
  - DEVICE MALFUNCTION [None]
  - CULTURE STOOL POSITIVE [None]
  - DIARRHOEA [None]
  - FLUID OVERLOAD [None]
  - SECONDARY HYPERTENSION [None]
